FAERS Safety Report 20746408 (Version 1)
Quarter: 2022Q2

REPORT INFORMATION
  Report Type: Spontaneous
  Country: US (occurrence: US)
  Receive Date: 20220425
  Receipt Date: 20220425
  Transmission Date: 20220721
  Serious: No
  Sender: FDA-Public Use
  Company Number: US-PFIZER INC-2020254561

PATIENT
  Age: 65 Year
  Sex: Female

DRUGS (1)
  1. LYRICA [Suspect]
     Active Substance: PREGABALIN
     Indication: Meralgia paraesthetica
     Dosage: 50 MG, 3X/DAY
     Dates: start: 20200619

REACTIONS (2)
  - Off label use [Unknown]
  - Mental disorder [Unknown]

NARRATIVE: CASE EVENT DATE: 20200619
